FAERS Safety Report 25586134 (Version 1)
Quarter: 2025Q3

REPORT INFORMATION
  Report Type: Spontaneous
  Country: GB (occurrence: GB)
  Receive Date: 20250721
  Receipt Date: 20250721
  Transmission Date: 20251020
  Serious: Yes (Other)
  Sender: MYLAN
  Company Number: GB-MHRA-MED-202507031952468180-CDRJP

PATIENT
  Age: 40 Year
  Sex: Female
  Weight: 107 kg

DRUGS (3)
  1. ATORVASTATIN [Suspect]
     Active Substance: ATORVASTATIN
     Indication: Product used for unknown indication
  2. LEVOTHYROXINE [Concomitant]
     Active Substance: LEVOTHYROXINE
  3. NOVORAPID [Concomitant]
     Active Substance: INSULIN ASPART

REACTIONS (6)
  - Muscular weakness [Recovered/Resolved]
  - Dyspnoea [Unknown]
  - Fluid retention [Recovered/Resolved]
  - Abnormal weight gain [Recovered/Resolved]
  - Peripheral swelling [Recovered/Resolved]
  - Fatigue [Recovered/Resolved]
